FAERS Safety Report 17166407 (Version 6)
Quarter: 2020Q3

REPORT INFORMATION
  Report Type: Spontaneous
  Country: US (occurrence: US)
  Receive Date: 20191217
  Receipt Date: 20200825
  Transmission Date: 20201102
  Serious: Yes (Other)
  Sender: FDA-Public Use
  Company Number: US-ACTELION-A-NJ2019-199341

PATIENT
  Sex: Male
  Weight: 90.7 kg

DRUGS (6)
  1. UPTRAVI [Suspect]
     Active Substance: SELEXIPAG
     Dosage: 200 MCG, BID
     Route: 048
  2. AMBRISENTAN [Concomitant]
     Active Substance: AMBRISENTAN
  3. UPTRAVI [Suspect]
     Active Substance: SELEXIPAG
     Indication: PULMONARY ARTERIAL HYPERTENSION
     Dosage: 400 MCG, BID
     Route: 048
  4. TADALAFIL. [Concomitant]
     Active Substance: TADALAFIL
  5. UPTRAVI [Suspect]
     Active Substance: SELEXIPAG
     Dosage: UNK
     Route: 048
  6. UPTRAVI [Suspect]
     Active Substance: SELEXIPAG
     Dosage: 600 MCG, BID
     Route: 048

REACTIONS (16)
  - Muscle spasms [Unknown]
  - Headache [Not Recovered/Not Resolved]
  - Cough [Unknown]
  - Migraine [Unknown]
  - Bone pain [Unknown]
  - Asthenia [Unknown]
  - Productive cough [Unknown]
  - Insomnia [Unknown]
  - Pain [Unknown]
  - Myalgia [Unknown]
  - Pulmonary fibrosis [Unknown]
  - Idiopathic pulmonary fibrosis [Unknown]
  - Lethargy [Unknown]
  - Arthralgia [Unknown]
  - Muscle fatigue [Unknown]
  - Wheezing [Unknown]
